FAERS Safety Report 12522498 (Version 2)
Quarter: 2018Q2

REPORT INFORMATION
  Report Type: Spontaneous
  Country: US (occurrence: US)
  Receive Date: 20160701
  Receipt Date: 20180524
  Transmission Date: 20180711
  Serious: Yes (Other)
  Sender: FDA-Public Use
  Company Number: US-JAZZ-2016-US-010930

PATIENT
  Age: 21 Year
  Sex: Female

DRUGS (45)
  1. DEXTROAMPHETAMINE. [Concomitant]
     Active Substance: DEXTROAMPHETAMINE
     Indication: NARCOLEPSY
     Dosage: 10 MG, 2 TO 3 TIMES DAILY
     Dates: start: 20160510
  2. NUVIGIL [Concomitant]
     Active Substance: ARMODAFINIL
     Indication: PRODUCT USED FOR UNKNOWN INDICATION
     Dosage: UNK
     Dates: start: 20160119
  3. LAMICTAL [Concomitant]
     Active Substance: LAMOTRIGINE
     Indication: DEPRESSION
  4. CYANOCOBALAMIN. [Concomitant]
     Active Substance: CYANOCOBALAMIN
     Indication: PRODUCT USED FOR UNKNOWN INDICATION
     Dosage: UNK ?G/ML, UNK
     Route: 030
     Dates: start: 201510
  5. LAMOTRIGINE. [Concomitant]
     Active Substance: LAMOTRIGINE
     Indication: DEPRESSION
  6. AMITIZA [Concomitant]
     Active Substance: LUBIPROSTONE
     Indication: CONSTIPATION
     Dosage: UNK UNK, QD
  7. FISH OIL [Concomitant]
     Active Substance: FISH OIL
     Indication: PRODUCT USED FOR UNKNOWN INDICATION
  8. TRAZODONE [Concomitant]
     Active Substance: TRAZODONE HYDROCHLORIDE
     Indication: MUSCLE RELAXANT THERAPY
  9. LAMICTAL [Concomitant]
     Active Substance: LAMOTRIGINE
     Indication: MUSCLE TIGHTNESS
     Dosage: UNK
     Dates: start: 20151008
  10. TOPIRAMATE. [Concomitant]
     Active Substance: TOPIRAMATE
     Indication: MIGRAINE PROPHYLAXIS
     Dosage: 100 MG TWICE DAILY
     Dates: start: 20151008
  11. MIDOL [Concomitant]
     Active Substance: IBUPROFEN
     Indication: DYSMENORRHOEA
     Dosage: UNK, PRN
  12. MULTIVITAMIN [Concomitant]
     Active Substance: VITAMINS
     Indication: PRODUCT USED FOR UNKNOWN INDICATION
  13. RIZATRIPTAN. [Concomitant]
     Active Substance: RIZATRIPTAN
     Indication: MIGRAINE
     Dosage: UNK UNK, PRN
     Route: 048
  14. XYREM [Suspect]
     Active Substance: SODIUM OXYBATE
     Indication: CATAPLEXY
     Dosage: 4 G, FIRST DOSE
     Route: 048
     Dates: start: 2016
  15. XYREM [Suspect]
     Active Substance: SODIUM OXYBATE
     Dosage: 2 G, SECOND DOSE
     Route: 048
     Dates: start: 2016
  16. CYCLOBENZAPRINE. [Concomitant]
     Active Substance: CYCLOBENZAPRINE
     Indication: MUSCLE TIGHTNESS
     Dosage: 10 MG 2 TO 3 TIMES DAILY
     Dates: start: 20160510, end: 201606
  17. VITAMIN D3 [Concomitant]
     Active Substance: CHOLECALCIFEROL
     Dosage: 1000 U
     Dates: start: 201605
  18. GABAPENTIN. [Concomitant]
     Active Substance: GABAPENTIN
     Indication: PAIN
  19. CALCIUM CITRATE [Concomitant]
     Active Substance: CALCIUM CITRATE
     Indication: PRODUCT USED FOR UNKNOWN INDICATION
     Dosage: UNK
     Dates: start: 201602
  20. MAXALT [Concomitant]
     Active Substance: RIZATRIPTAN BENZOATE
     Indication: MIGRAINE
     Dosage: UNK
     Dates: start: 20151008
  21. LEVOTHYROXINE. [Concomitant]
     Active Substance: LEVOTHYROXINE
     Indication: HYPOTHYROIDISM
     Dosage: UNK UNK, QD
  22. CORAL CALCIUM [Concomitant]
     Active Substance: DIETARY SUPPLEMENT
     Indication: PRODUCT USED FOR UNKNOWN INDICATION
  23. BACLOFEN. [Concomitant]
     Active Substance: BACLOFEN
     Indication: PRODUCT USED FOR UNKNOWN INDICATION
     Dosage: UNK
     Dates: start: 20160510, end: 201606
  24. COENZYME Q10 [Concomitant]
     Active Substance: UBIDECARENONE
     Indication: SUPPLEMENTATION THERAPY
     Dosage: UNK
     Dates: start: 201602
  25. TRAZODONE [Concomitant]
     Active Substance: TRAZODONE HYDROCHLORIDE
     Indication: MUSCLE TIGHTNESS
     Dosage: 300 MG AT NIGHT
     Dates: start: 20151103
  26. HYDROCODONE [Concomitant]
     Active Substance: HYDROCODONE
     Indication: PAIN
     Dosage: 5/325 MG UP TO THREE TIMES DAILY AS NEEDED
  27. FLUTICASONE PROPIONATE. [Concomitant]
     Active Substance: FLUTICASONE PROPIONATE
     Indication: HYPERSENSITIVITY
     Dosage: 50 MCG, 2 SPRAYS PER NOSTRIL DAILY
     Dates: start: 20160205
  28. TRAZODONE [Concomitant]
     Active Substance: TRAZODONE HYDROCHLORIDE
     Indication: SLEEP DISORDER
  29. MINOCYCLINE [Concomitant]
     Active Substance: MINOCYCLINE\MINOCYCLINE HYDROCHLORIDE
     Indication: ACNE
     Dosage: UNK UNK, BID
  30. PANTOPRAZOLE SODIUM. [Concomitant]
     Active Substance: PANTOPRAZOLE SODIUM
     Indication: GASTROOESOPHAGEAL REFLUX DISEASE
     Dosage: UNK UNK, QD
  31. PANTOPRAZOLE SODIUM. [Concomitant]
     Active Substance: PANTOPRAZOLE SODIUM
     Indication: DYSPEPSIA
  32. LAMOTRIGINE. [Concomitant]
     Active Substance: LAMOTRIGINE
     Indication: MUSCLE DISORDER
     Dosage: UNK UNK, TID
  33. ONDANSETRON [Concomitant]
     Active Substance: ONDANSETRON
     Indication: NAUSEA
     Dosage: 8 UNK, UNK
  34. NORETHINDRONE. [Concomitant]
     Active Substance: NORETHINDRONE
     Indication: PROGESTERONE
  35. NORETHINDRONE. [Concomitant]
     Active Substance: NORETHINDRONE
     Indication: DYSMENORRHOEA
  36. HYDROCODONE/ACETAMINOPHEN [Concomitant]
     Active Substance: ACETAMINOPHEN\HYDROCODONE
     Indication: PAIN
     Dosage: 5-325
     Dates: start: 20140503
  37. CYCLOBENZAPRINE. [Concomitant]
     Active Substance: CYCLOBENZAPRINE
     Indication: HEADACHE
  38. DEXTROAMPHETAMINE. [Concomitant]
     Active Substance: DEXTROAMPHETAMINE
     Indication: SOMNOLENCE
  39. VITAMIN D3 [Concomitant]
     Active Substance: CHOLECALCIFEROL
     Indication: VITAMIN D DEFICIENCY
     Dosage: 2000 IU
  40. L-ARGININE [Concomitant]
     Active Substance: ARGININE
     Indication: PRODUCT USED FOR UNKNOWN INDICATION
  41. XYREM [Suspect]
     Active Substance: SODIUM OXYBATE
     Indication: NARCOLEPSY
     Dosage: 4.5 G, BID
     Route: 048
     Dates: start: 20160527, end: 2016
  42. GABAPENTIN. [Concomitant]
     Active Substance: GABAPENTIN
     Indication: NEUROPATHY PERIPHERAL
     Dosage: UNK
     Dates: start: 20160315
  43. ACETYL L-CARNITINE [Concomitant]
     Active Substance: ACETYLCARNITINE
     Indication: ILL-DEFINED DISORDER
     Dosage: UNK
     Dates: start: 20160205
  44. NORETHINDRONE. [Concomitant]
     Active Substance: NORETHINDRONE
     Indication: CONTRACEPTION
     Dosage: UNK
     Dates: start: 20160205
  45. VITAMIN C [Concomitant]
     Active Substance: ASCORBIC ACID
     Indication: VITAMIN C DECREASED
     Dosage: UNK
     Dates: start: 201602

REACTIONS (3)
  - Endometriosis [Recovered/Resolved]
  - Fatigue [Not Recovered/Not Resolved]
  - Condition aggravated [Not Recovered/Not Resolved]

NARRATIVE: CASE EVENT DATE: 2016
